FAERS Safety Report 20222175 (Version 4)
Quarter: 2022Q2

REPORT INFORMATION
  Report Type: Spontaneous
  Country: ES (occurrence: ES)
  Receive Date: 20211223
  Receipt Date: 20220524
  Transmission Date: 20220721
  Serious: Yes (Life-Threatening, Hospitalization, Other)
  Sender: FDA-Public Use
  Company Number: ES-BRISTOL-MYERS SQUIBB COMPANY-BMS-2021-137528

PATIENT
  Age: 69 Year
  Sex: Male

DRUGS (5)
  1. ORENCIA [Suspect]
     Active Substance: ABATACEPT
     Indication: Rheumatoid arthritis
     Dosage: 125 MILLIGRAMS, EVERY 7 HOURS
     Route: 058
     Dates: start: 20190621
  2. PREDNISONE [Concomitant]
     Active Substance: PREDNISONE
     Indication: Arthritis
     Dosage: 5 MILLIGRAM, QD
     Route: 048
     Dates: start: 20190401
  3. LEFLUARTIL [Concomitant]
     Indication: Arthritis
     Dosage: 20 MILLIGRAM, QD
     Route: 048
     Dates: start: 20190401
  4. LEFLUARTIL [Concomitant]
     Indication: Rheumatoid arthritis
  5. PALEXIA [Concomitant]
     Active Substance: TAPENTADOL HYDROCHLORIDE
     Indication: Pain
     Route: 048
     Dates: start: 20210506

REACTIONS (4)
  - Amyotrophic lateral sclerosis [Not Recovered/Not Resolved]
  - Hydronephrosis [Unknown]
  - Nephrolithiasis [Unknown]
  - Off label use [Unknown]

NARRATIVE: CASE EVENT DATE: 20210823
